FAERS Safety Report 6759602-X (Version None)
Quarter: 2010Q2

REPORT INFORMATION
  Report Type: 
  Country: None (occurrence: None)
  Receive Date: 20100608
  Receipt Date: 20100601
  Transmission Date: 20101027
  Serious: Yes (Hospitalization)
  Sender: FDA-Public Use
  Company Number: US-BIOGENIDEC-2008BI009079

PATIENT
  Age: 57 Year
  Sex: Female
  Weight: 127 kg

DRUGS (5)
  1. TYSABRI [Suspect]
     Indication: MULTIPLE SCLEROSIS
     Route: 042
     Dates: start: 20080112
  2. RESTORIL [Concomitant]
     Indication: INSOMNIA
     Dates: start: 20071101
  3. LEXAPRO [Concomitant]
     Indication: DEPRESSION
     Dates: start: 20030101
  4. VICODIN [Concomitant]
     Indication: ARTHRALGIA
     Dates: start: 20070101
  5. ATARAX [Concomitant]
     Indication: PRURITUS
     Dates: start: 20050101

REACTIONS (12)
  - ACCIDENT [None]
  - ARTHRITIS [None]
  - BONE FRAGMENTATION [None]
  - CONCUSSION [None]
  - DIPLOPIA [None]
  - FACIAL BONES FRACTURE [None]
  - FIBROMYALGIA [None]
  - GASTRIC DISORDER [None]
  - PERIORBITAL HAEMATOMA [None]
  - SWELLING FACE [None]
  - TYPE 2 DIABETES MELLITUS [None]
  - VOMITING [None]
